FAERS Safety Report 12552374 (Version 2)
Quarter: 2016Q3

REPORT INFORMATION
  Report Type: Spontaneous
  Country: DE (occurrence: DE)
  Receive Date: 20160713
  Receipt Date: 20160721
  Transmission Date: 20161109
  Serious: Yes (Hospitalization, Other)
  Sender: FDA-Public Use
  Company Number: DE-SUN PHARMACEUTICAL INDUSTRIES LTD-2016R1-120133

PATIENT
  Age: 72 Year
  Sex: Female

DRUGS (5)
  1. MANNITOL. [Suspect]
     Active Substance: MANNITOL
     Indication: PRODUCT USED FOR UNKNOWN INDICATION
     Route: 065
     Dates: start: 2014
  2. DEXAMETHASONE. [Suspect]
     Active Substance: DEXAMETHASONE
     Indication: FACIAL PARALYSIS
  3. DEXAMETHASONE. [Suspect]
     Active Substance: DEXAMETHASONE
     Indication: DIPLOPIA
     Dosage: 8 MG, TID
     Route: 065
     Dates: start: 2014
  4. DEXAMETHASONE. [Suspect]
     Active Substance: DEXAMETHASONE
     Indication: FACIAL PARALYSIS
  5. DEXAMETHASONE. [Suspect]
     Active Substance: DEXAMETHASONE
     Indication: DIPLOPIA
     Dosage: 1.5 MG, TID
     Route: 065
     Dates: start: 2014

REACTIONS (5)
  - Drug ineffective [Unknown]
  - Disorientation [Recovered/Resolved]
  - Somnolence [Unknown]
  - Ataxia [Recovering/Resolving]
  - Encephalitis cytomegalovirus [Recovered/Resolved]

NARRATIVE: CASE EVENT DATE: 2014
